FAERS Safety Report 24528597 (Version 3)
Quarter: 2024Q4

REPORT INFORMATION
  Report Type: Spontaneous
  Country: JP (occurrence: JP)
  Receive Date: 20241021
  Receipt Date: 20241101
  Transmission Date: 20250115
  Serious: Yes (Hospitalization, Other)
  Sender: UCB
  Company Number: JP-UCBJ-CD202409760UCBPHAPROD

PATIENT
  Age: 2 Decade
  Sex: Female

DRUGS (11)
  1. VIMPAT [Suspect]
     Active Substance: LACOSAMIDE
     Indication: Epilepsy
     Dosage: 50 MILLIGRAM, ONCE DAILY (QD)
     Route: 048
  2. VIMPAT [Suspect]
     Active Substance: LACOSAMIDE
     Indication: Myoclonic epilepsy
     Dosage: 200 MILLIGRAM, 2X/DAY (BID)
     Route: 048
  3. LEVETIRACETAM [Suspect]
     Active Substance: LEVETIRACETAM
     Indication: Epilepsy
     Dosage: 1500 MILLIGRAM, 2X/DAY (BID)
     Route: 048
  4. LEVETIRACETAM [Suspect]
     Active Substance: LEVETIRACETAM
     Indication: Myoclonic epilepsy
     Dosage: 1000 MILLIGRAM, 2X/DAY (BID)
     Route: 048
  5. CARBAMAZEPINE [Concomitant]
     Active Substance: CARBAMAZEPINE
     Indication: Generalised tonic-clonic seizure
     Dosage: 10 MILLIGRAM, 2X/DAY (BID)
  6. CLONAZEPAM [Concomitant]
     Active Substance: CLONAZEPAM
     Indication: Myoclonic epilepsy
  7. CLOBAZAM [Concomitant]
     Active Substance: CLOBAZAM
     Indication: Epilepsy
     Dosage: 10 MILLIGRAM, 2X/DAY (BID)
  8. CLOBAZAM [Concomitant]
     Active Substance: CLOBAZAM
     Indication: Myoclonic epilepsy
  9. RUFINAMIDE [Concomitant]
     Active Substance: RUFINAMIDE
     Indication: Product used for unknown indication
  10. PERAMPANEL [Concomitant]
     Active Substance: PERAMPANEL
     Indication: Epilepsy
     Dosage: 6 MILLIGRAM, DAILY
  11. PERAMPANEL [Concomitant]
     Active Substance: PERAMPANEL
     Indication: Myoclonic epilepsy
     Dosage: 8 MILLIGRAM, DAILY

REACTIONS (3)
  - Epilepsy [Recovering/Resolving]
  - Somnolence [Recovering/Resolving]
  - Off label use [Unknown]
